FAERS Safety Report 4648679-3 (Version None)
Quarter: 2005Q2

REPORT INFORMATION
  Report Type: 
  Country: None (occurrence: None)
  Receive Date: 20050427
  Receipt Date: 20050413
  Transmission Date: 20051028
  Serious: Yes (Other)
  Sender: FDA-Public Use
  Company Number: CA_050408022

PATIENT
  Age: 39 Year
  Sex: Male

DRUGS (7)
  1. FORTEO [Suspect]
     Indication: OSTEOPOROSIS
     Dosage: 20 UG/1 DAY
     Dates: start: 20041202
  2. PREDNISONE [Concomitant]
  3. GLYBURIDE [Concomitant]
  4. COUMADIN [Concomitant]
  5. MONOPRIL [Concomitant]
  6. ACTONEL [Concomitant]
  7. IMMUNOGLOBULIN (IMMUNOGLOBULIN HUMAN NORMAL) [Concomitant]

REACTIONS (2)
  - ARTHRALGIA [None]
  - HAEMOGLOBIN DECREASED [None]
